FAERS Safety Report 5352248-X (Version None)
Quarter: 2007Q2

REPORT INFORMATION
  Report Type: 
  Country: None (occurrence: None)
  Receive Date: 20070607
  Receipt Date: 20070530
  Transmission Date: 20071010
  Serious: Yes (Hospitalization)
  Sender: FDA-Public Use
  Company Number: 163-20785-07030793

PATIENT
  Age: 42 Year
  Sex: Female

DRUGS (15)
  1. THALOMID [Suspect]
     Indication: MULTIPLE MYELOMA
     Dosage: SEE IMAGE
     Route: 048
     Dates: start: 20060414, end: 20060501
  2. THALOMID [Suspect]
     Indication: MULTIPLE MYELOMA
     Dosage: SEE IMAGE
     Route: 048
     Dates: start: 20060512
  3. DEXAMETHASONE [Suspect]
     Indication: DRUG USE FOR UNKNOWN INDICATION
     Dosage: 40 MG, ONCE DAILY ON DAYS 1-4, 9-12, ORAL
     Route: 048
     Dates: start: 20060417
  4. DEMEROL [Suspect]
     Indication: DRUG USE FOR UNKNOWN INDICATION
     Dosage: 50 MG, IVP
     Route: 042
     Dates: start: 20060731
  5. POTASSIUM CHLORIDE [Suspect]
     Indication: DRUG USE FOR UNKNOWN INDICATION
     Dosage: 20 MEQ, ONCE DAILY, ORAL
     Route: 048
     Dates: start: 20060731
  6. ZOMETA [Concomitant]
  7. SODIUM CHLORIDE (SODIUM CHLORIDE) (0.9 PERCENT) [Concomitant]
  8. LOVENOX [Concomitant]
  9. DOCUSATE SODIUM (DOCUSATE SODIUM) (CAPSULES) [Concomitant]
  10. NEBUPENT [Concomitant]
  11. AZITHROMYCIN (AZITHROMYCIN) (TABLETS) [Concomitant]
  12. PREVACID [Concomitant]
  13. FUROSEMIDE [Concomitant]
  14. MORPHINE (MORPHINE) (TABLETS) [Concomitant]
  15. LORAZEPAM [Concomitant]

REACTIONS (5)
  - ASTHENIA [None]
  - IMMOBILE [None]
  - MOTOR DYSFUNCTION [None]
  - MULTIPLE MYELOMA [None]
  - MUSCLE ATROPHY [None]
